FAERS Safety Report 5918707-3 (Version None)
Quarter: 2008Q4

REPORT INFORMATION
  Report Type: 
  Country: None (occurrence: None)
  Receive Date: 20081015
  Receipt Date: 20080808
  Transmission Date: 20090506
  Serious: No
  Sender: FDA-Public Use
  Company Number: US-ASTRAZENECA-2008UW12158

PATIENT
  Age: 59 Year
  Sex: Female
  Weight: 67.6 kg

DRUGS (4)
  1. SYMBICORT [Suspect]
     Indication: COUGH
     Dosage: 80/4.5 UG
     Route: 055
     Dates: start: 20080603
  2. SYMBICORT [Suspect]
     Indication: HYPERSENSITIVITY
     Dosage: 80/4.5 UG
     Route: 055
     Dates: start: 20080603
  3. SIMVASTATIN [Concomitant]
     Indication: HYPERCHOLESTEROLAEMIA
     Route: 048
     Dates: start: 20030101
  4. MICARDIS [Concomitant]
     Indication: HYPERTENSION
     Route: 048
     Dates: start: 20080512

REACTIONS (2)
  - LIP SWELLING [None]
  - SWELLING FACE [None]
